FAERS Safety Report 10012144 (Version 2)
Quarter: 2014Q2

REPORT INFORMATION
  Report Type: Spontaneous
  Country: US (occurrence: US)
  Receive Date: 20140314
  Receipt Date: 20140512
  Transmission Date: 20141212
  Serious: No
  Sender: FDA-Public Use
  Company Number: US-009507513-1403USA001567

PATIENT
  Age: 80 Year
  Sex: Female
  Weight: 64.85 kg

DRUGS (1)
  1. OXYTROL FOR WOMEN [Suspect]
     Indication: INCONTINENCE
     Dosage: 1 DF, Q4D
     Route: 062

REACTIONS (6)
  - Dizziness [Unknown]
  - Application site papules [Recovering/Resolving]
  - Application site burn [Recovering/Resolving]
  - Rash erythematous [Recovering/Resolving]
  - Application site erythema [Recovering/Resolving]
  - Drug administered at inappropriate site [Unknown]
